FAERS Safety Report 13956201 (Version 6)
Quarter: 2018Q2

REPORT INFORMATION
  Report Type: Report from Study
  Country: None (occurrence: US)
  Receive Date: 20170911
  Receipt Date: 20180516
  Transmission Date: 20180711
  Serious: Yes (Hospitalization, Other)
  Sender: FDA-Public Use
  Company Number: US-ABBVIE-17K-163-2097305-00

PATIENT
  Sex: Female
  Weight: 64.01 kg

DRUGS (3)
  1. HUMIRA [Suspect]
     Active Substance: ADALIMUMAB
     Route: 058
     Dates: start: 2018
  2. HUMIRA [Suspect]
     Active Substance: ADALIMUMAB
     Indication: RHEUMATOID ARTHRITIS
     Route: 058
     Dates: start: 2017, end: 201708
  3. HUMIRA [Suspect]
     Active Substance: ADALIMUMAB
     Route: 058
     Dates: start: 201710, end: 201711

REACTIONS (25)
  - Asthma [Unknown]
  - Rotator cuff syndrome [Unknown]
  - Fatigue [Not Recovered/Not Resolved]
  - Head injury [Unknown]
  - Craniocerebral injury [Unknown]
  - Sciatica [Unknown]
  - Bronchitis [Recovering/Resolving]
  - Rheumatoid arthritis [Unknown]
  - Chronic obstructive pulmonary disease [Unknown]
  - Migraine [Not Recovered/Not Resolved]
  - Joint range of motion decreased [Unknown]
  - Sensitivity to weather change [Unknown]
  - Post procedural infection [Recovering/Resolving]
  - Malaise [Unknown]
  - Limb injury [Unknown]
  - Seasonal allergy [Unknown]
  - Rotator cuff syndrome [Unknown]
  - Fall [Recovered/Resolved]
  - Fall [Unknown]
  - Erythema [Unknown]
  - Staphylococcal infection [Unknown]
  - Limb injury [Unknown]
  - Fall [Unknown]
  - Post procedural complication [Unknown]
  - Fall [Recovered/Resolved]

NARRATIVE: CASE EVENT DATE: 2017
